FAERS Safety Report 4997817-1 (Version None)
Quarter: 2006Q2

REPORT INFORMATION
  Report Type: 
  Country: None (occurrence: None)
  Receive Date: 20060510
  Receipt Date: 20060405
  Transmission Date: 20061013
  Serious: No
  Sender: FDA-Public Use
  Company Number: US-BRISTOL-MYERS SQUIBB COMPANY-13337613

PATIENT
  Age: 66 Year
  Sex: Female
  Weight: 61 kg

DRUGS (5)
  1. MONOPRIL TABS 40 MG [Suspect]
     Indication: HYPERTENSION
     Dates: start: 20060118
  2. FUROSEMIDE [Concomitant]
  3. ONE-A-DAY [Concomitant]
     Indication: HYPERTENSION
     Dates: start: 20060118
  4. CALCIUM + VITAMIN D [Concomitant]
  5. ASPIRIN [Concomitant]

REACTIONS (2)
  - DYSGEUSIA [None]
  - THROAT IRRITATION [None]
